FAERS Safety Report 25277985 (Version 1)
Quarter: 2025Q2

REPORT INFORMATION
  Report Type: Spontaneous
  Country: FR (occurrence: FR)
  Receive Date: 20250507
  Receipt Date: 20250507
  Transmission Date: 20250717
  Serious: Yes (Other)
  Sender: SANOFI AVENTIS
  Company Number: FR-SANOFI-02505127

PATIENT
  Age: 69 Year
  Sex: Female

DRUGS (1)
  1. ARAVA [Suspect]
     Active Substance: LEFLUNOMIDE
     Dates: start: 2020

REACTIONS (2)
  - Hypertensive crisis [Unknown]
  - Small fibre neuropathy [Unknown]
